FAERS Safety Report 26151700 (Version 1)
Quarter: 2025Q4

REPORT INFORMATION
  Report Type: Spontaneous
  Country: US (occurrence: None)
  Receive Date: 20251212
  Receipt Date: 20251212
  Transmission Date: 20260118
  Serious: No
  Sender: FDA-CTU
  Company Number: None

PATIENT
  Sex: Male

DRUGS (3)
  1. BCG LIVE [Suspect]
     Active Substance: BCG LIVE
  2. BCG LIVE [Suspect]
     Active Substance: BCG LIVE
  3. PEMBROLIZUMAB [Suspect]
     Active Substance: PEMBROLIZUMAB

REACTIONS (3)
  - Abdominal abscess [None]
  - Osteomyelitis [None]
  - Mycobacterium tuberculosis complex test positive [None]

NARRATIVE: CASE EVENT DATE: 20241203
